FAERS Safety Report 5416445-7 (Version None)
Quarter: 2007Q3

REPORT INFORMATION
  Report Type: 
  Country: None (occurrence: None)
  Receive Date: 20070813
  Receipt Date: 20070813
  Transmission Date: 20080115
  Serious: No
  Sender: FDA-Public Use
  Company Number: None

PATIENT
  Age: 27 Year
  Sex: Male
  Weight: 74.8435 kg

DRUGS (1)
  1. CIPROFLOXACIN [Suspect]
     Indication: CONJUNCTIVITIS
     Dosage: 1 DROP 1 DROP EVERY 2 HRS INTRAOCULAR
     Route: 031
     Dates: start: 20070615, end: 20070621

REACTIONS (5)
  - ABASIA [None]
  - LIMB INJURY [None]
  - MYALGIA [None]
  - PAIN IN EXTREMITY [None]
  - TENDON PAIN [None]
